FAERS Safety Report 8185675-6 (Version None)
Quarter: 2012Q1

REPORT INFORMATION
  Report Type: 
  Country: None (occurrence: None)
  Receive Date: 20120305
  Receipt Date: 20120223
  Transmission Date: 20120608
  Serious: Yes (Hospitalization)
  Sender: FDA-Public Use
  Company Number: FR-ROCHE-1043086

PATIENT
  Sex: Male

DRUGS (14)
  1. ATROVENT [Concomitant]
  2. IRBESARTAN [Concomitant]
  3. ROCEPHIN [Suspect]
     Indication: PRODUCT USED FOR UNKNOWN INDICATION
     Route: 030
     Dates: start: 20120103, end: 20120105
  4. STABLON [Suspect]
     Indication: PRODUCT USED FOR UNKNOWN INDICATION
     Route: 048
  5. FLUTICASONE PROPIONATE/SALMETEROL [Concomitant]
  6. CORVASAL [Concomitant]
  7. LASIX [Concomitant]
  8. POTASSIUM CHLORIDE [Concomitant]
  9. ACETAMINOPHEN [Concomitant]
  10. DESLORATADINE [Concomitant]
  11. BRICANYL [Concomitant]
  12. PANTOPRAZOLE [Concomitant]
  13. AUGMENTIN '125' [Suspect]
     Indication: PRODUCT USED FOR UNKNOWN INDICATION
     Route: 048
  14. PAROXETINE HYDROCHLORIDE [Concomitant]

REACTIONS (1)
  - ERYTHEMA MULTIFORME [None]
